FAERS Safety Report 23389593 (Version 1)
Quarter: 2024Q1

REPORT INFORMATION
  Report Type: Spontaneous
  Country: US (occurrence: US)
  Receive Date: 20240111
  Receipt Date: 20240111
  Transmission Date: 20240409
  Serious: No
  Sender: FDA-Public Use
  Company Number: US-STRIDES ARCOLAB LIMITED-2022SP016459

PATIENT
  Sex: Male

DRUGS (7)
  1. DUTASTERIDE [Suspect]
     Active Substance: DUTASTERIDE
     Indication: Product used for unknown indication
     Dosage: 0.5 MILLIGRAM DAILY
     Route: 065
  2. MINOXIDIL [Suspect]
     Active Substance: MINOXIDIL
     Indication: Product used for unknown indication
     Dosage: 5 MILLIGRAM DAILY
     Route: 065
  3. BIOTIN [Suspect]
     Active Substance: BIOTIN
     Indication: Product used for unknown indication
     Dosage: 1 MILLIGRAM DAILY
     Route: 065
  4. PROPECIA [Concomitant]
     Active Substance: FINASTERIDE
     Indication: Product used for unknown indication
     Dosage: UNK
     Route: 065
     Dates: start: 201703, end: 2018
  5. PROPECIA [Concomitant]
     Active Substance: FINASTERIDE
     Dosage: 1 MILLIGRAM, DAILY (FINASTERIDE)
     Route: 065
     Dates: start: 2018
  6. PROPECIA [Concomitant]
     Active Substance: FINASTERIDE
     Dosage: UNK
     Route: 065
     Dates: start: 20220508, end: 2022
  7. PROPECIA [Concomitant]
     Active Substance: FINASTERIDE
     Dosage: UNK
     Route: 065
     Dates: start: 20221111

REACTIONS (2)
  - Palpitations [Unknown]
  - Pleural effusion [Unknown]
